FAERS Safety Report 11433053 (Version 1)
Quarter: 2015Q3

REPORT INFORMATION
  Report Type: Spontaneous
  Country: US (occurrence: None)
  Receive Date: 20150828
  Receipt Date: 20150828
  Transmission Date: 20151125
  Serious: Yes (Death)
  Sender: FDA-Public Use
  Company Number: None

PATIENT
  Age: 61 Year
  Sex: Female
  Weight: 60.47 kg

DRUGS (2)
  1. CITALOPRAM [Suspect]
     Active Substance: CITALOPRAM HYDROBROMIDE
     Indication: ANXIETY
     Dosage: CITALOPRAM 40MG  DAILY  ORAL?CITALOPRAM 40-  9/25/14 TO  10/8
     Route: 048
     Dates: start: 20140925
  2. CIPROFLOXACIN. [Suspect]
     Active Substance: CIPROFLOXACIN
     Indication: URINARY TRACT INFECTION
     Dosage: CIPROFLOXACIN 500MG  BID  ORAL?CIPROFLOXACIN- 10/7/14 TO 10/8
     Route: 048
     Dates: start: 20141007

REACTIONS (2)
  - Dyspnoea [None]
  - Urinary tract infection [None]

NARRATIVE: CASE EVENT DATE: 20141007
